FAERS Safety Report 22235853 (Version 1)
Quarter: 2023Q2

REPORT INFORMATION
  Report Type: Spontaneous
  Country: US (occurrence: None)
  Receive Date: 20230419
  Receipt Date: 20230419
  Transmission Date: 20230721
  Serious: No
  Sender: FDA-Public Use
  Company Number: None

PATIENT
  Age: 51 Year
  Sex: Male
  Weight: 100.24 kg

DRUGS (9)
  1. ERLEADA [Suspect]
     Active Substance: APALUTAMIDE
     Indication: Prostate cancer
     Dosage: FREQUENCY : DAILY;?
     Route: 048
  2. CETIRIZINE [Concomitant]
     Active Substance: CETIRIZINE HYDROCHLORIDE
  3. BICALUTAMIDE [Concomitant]
     Active Substance: BICALUTAMIDE
  4. CALCIUM [Concomitant]
     Active Substance: CALCIUM
  5. VITAMIN E [Concomitant]
     Active Substance: .ALPHA.-TOCOPHEROL
  6. OMEPRAZOLE [Concomitant]
     Active Substance: OMEPRAZOLE
  7. TAMSULISIN [Concomitant]
  8. TRAMADOL [Concomitant]
     Active Substance: TRAMADOL
  9. VITAMIN D3 [Concomitant]
     Active Substance: CHOLECALCIFEROL

REACTIONS (1)
  - Prostate cancer [None]
